FAERS Safety Report 5810304-3 (Version None)
Quarter: 2008Q3

REPORT INFORMATION
  Report Type: 
  Country: None (occurrence: None)
  Receive Date: 20080715
  Receipt Date: 20080310
  Transmission Date: 20090109
  Serious: No
  Sender: FDA-Public Use
  Company Number: A0715868A

PATIENT
  Sex: Male

DRUGS (2)
  1. IMITREX [Suspect]
  2. UNSPECIFIED MEDICATION [Concomitant]

REACTIONS (1)
  - MIGRAINE [None]
